FAERS Safety Report 4759303-3 (Version None)
Quarter: 2005Q3

REPORT INFORMATION
  Report Type: 
  Country: None (occurrence: None)
  Receive Date: 20050831
  Receipt Date: 20041028
  Transmission Date: 20060218
  Serious: Yes (Hospitalization, Other)
  Sender: FDA-Public Use
  Company Number: 206870

PATIENT
  Age: 56 Year
  Sex: Male

DRUGS (2)
  1. AVONEX [Suspect]
     Indication: MULTIPLE SCLEROSIS
     Dosage: 30 UG; QW; IM
     Route: 030
     Dates: start: 19980601
  2. PARACETAMOL [Concomitant]

REACTIONS (7)
  - ELECTROPHORESIS PROTEIN [None]
  - LABORATORY TEST ABNORMAL [None]
  - MULTIPLE SCLEROSIS RELAPSE [None]
  - RED BLOOD CELL SEDIMENTATION RATE INCREASED [None]
  - THROMBOCYTOPENIA [None]
  - WALDENSTROM'S MACROGLOBULINAEMIA [None]
  - WHITE BLOOD CELL COUNT INCREASED [None]
